FAERS Safety Report 11893564 (Version 7)
Quarter: 2016Q3

REPORT INFORMATION
  Report Type: Spontaneous
  Country: JP (occurrence: JP)
  Receive Date: 20160106
  Receipt Date: 20160906
  Transmission Date: 20161109
  Serious: Yes (Hospitalization, Other)
  Sender: FDA-Public Use
  Company Number: PHJP2016JP000489

PATIENT
  Age: 71 Year
  Sex: Female

DRUGS (5)
  1. TRINOSIN [Concomitant]
     Active Substance: ADENOSINE TRIPHOSPHATE DISODIUM
     Indication: DIZZINESS
     Dosage: 1 G, TID
     Route: 048
     Dates: start: 20150627, end: 20160103
  2. AROMASIN [Concomitant]
     Active Substance: EXEMESTANE
     Indication: BREAST CANCER
     Dosage: 25 MG, QD
     Route: 048
     Dates: end: 20160104
  3. METHYCOBAL [Concomitant]
     Active Substance: METHYLCOBALAMIN
     Indication: DIZZINESS
     Dosage: 500 MG, TID
     Route: 048
     Dates: start: 20150627
  4. LIMAPROST ALFADEX [Concomitant]
     Active Substance: LIMAPROST
     Indication: DIZZINESS
     Dosage: 10 UG, TID
     Route: 048
     Dates: start: 20150627
  5. AFINITOR [Suspect]
     Active Substance: EVEROLIMUS
     Indication: BREAST CANCER RECURRENT
     Dosage: 5 MG, QD
     Route: 048
     Dates: start: 20151204, end: 20160104

REACTIONS (17)
  - Gastrointestinal haemorrhage [Recovered/Resolved]
  - Faeces discoloured [Recovered/Resolved]
  - Malaise [Unknown]
  - Pyrexia [Unknown]
  - Stress cardiomyopathy [Unknown]
  - Respiratory failure [Unknown]
  - Renal failure [Unknown]
  - Anaemia [Unknown]
  - Oedema peripheral [Unknown]
  - Platelet count decreased [Recovered/Resolved]
  - Interstitial lung disease [Recovering/Resolving]
  - Stomatitis [Unknown]
  - Cough [Unknown]
  - Renal disorder [Recovered/Resolved with Sequelae]
  - Azotaemia [Unknown]
  - Acidosis [Unknown]
  - Decreased appetite [Unknown]

NARRATIVE: CASE EVENT DATE: 201512
